FAERS Safety Report 7726963-4 (Version None)
Quarter: 2011Q3

REPORT INFORMATION
  Report Type: 
  Country: None (occurrence: None)
  Receive Date: 20110902
  Receipt Date: 20110830
  Transmission Date: 20111222
  Serious: Yes (Other)
  Sender: FDA-Public Use
  Company Number: US-PFIZER INC-2011189689

PATIENT
  Sex: Male
  Weight: 86.168 kg

DRUGS (5)
  1. LAMICTAL [Concomitant]
     Indication: AFFECTIVE DISORDER
     Dosage: 100 MG, DAILY
     Route: 048
  2. GEODON [Concomitant]
     Indication: BIPOLAR DISORDER
     Dosage: 80 MG, DAILY
     Route: 048
  3. CHANTIX [Suspect]
     Dosage: 0.5 MG, DAILY
     Route: 048
     Dates: start: 20110803, end: 20110801
  4. CHANTIX [Suspect]
     Indication: SMOKING CESSATION THERAPY
     Dosage: STARTER PACK
     Dates: start: 20110803
  5. CHANTIX [Suspect]
     Dosage: 0.5 MG, 2X/DAY
     Route: 048
     Dates: start: 20110801

REACTIONS (2)
  - AGEUSIA [None]
  - ANOSMIA [None]
